FAERS Safety Report 12147953 (Version 2)
Quarter: 2016Q1

REPORT INFORMATION
  Report Type: Spontaneous
  Country: US (occurrence: US)
  Receive Date: 20160304
  Receipt Date: 20160318
  Transmission Date: 20160526
  Serious: Yes (Hospitalization, Disabling, Other)
  Sender: FDA-Public Use
  Company Number: US-009507513-1603USA002756

PATIENT
  Sex: Female
  Weight: 97.51 kg

DRUGS (5)
  1. VICTOZA [Suspect]
     Active Substance: LIRAGLUTIDE
     Indication: TYPE 2 DIABETES MELLITUS
     Dosage: 0.6 MG QD FIRST WEEK THEN 1.2 MG QD
     Dates: start: 20130723
  2. JANUMET [Suspect]
     Active Substance: METFORMIN HYDROCHLORIDE\SITAGLIPTIN PHOSPHATE
     Indication: TYPE 2 DIABETES MELLITUS
     Dosage: 50-1000 MG, BID
     Route: 048
     Dates: start: 20130723, end: 20140524
  3. JANUMET XR [Suspect]
     Active Substance: METFORMIN HYDROCHLORIDE\SITAGLIPTIN PHOSPHATE
     Indication: TYPE 2 DIABETES MELLITUS
     Dosage: 50/100 QD
     Route: 048
     Dates: start: 20130723, end: 20140524
  4. JANUVIA [Suspect]
     Active Substance: SITAGLIPTIN PHOSPHATE
     Indication: TYPE 2 DIABETES MELLITUS
     Dosage: UNK
     Route: 048
     Dates: end: 20140524
  5. VICTOZA [Suspect]
     Active Substance: LIRAGLUTIDE
     Dosage: 1.8 MG, QD
     Dates: end: 20140524

REACTIONS (24)
  - Adenocarcinoma pancreas [Recovered/Resolved]
  - Tumour invasion [Unknown]
  - Cholelithiasis [Unknown]
  - Carpal tunnel decompression [Unknown]
  - Pancreatitis acute [Recovered/Resolved]
  - Hypersensitivity [Unknown]
  - Hepatic steatosis [Unknown]
  - Drug ineffective [Unknown]
  - Fear [Unknown]
  - Essential hypertension [Unknown]
  - Flank pain [Unknown]
  - Pancreatic stent placement [Unknown]
  - Meniscus operation [Unknown]
  - Urinary tract infection [Unknown]
  - Dysuria [Unknown]
  - Hernia repair [Unknown]
  - Urinary tract infection [Unknown]
  - Cholecystitis chronic [Unknown]
  - Type V hyperlipidaemia [Unknown]
  - Anxiety [Unknown]
  - Arthroscopy [Unknown]
  - Initial insomnia [Unknown]
  - Bile duct stenosis [Unknown]
  - Sinus congestion [Unknown]

NARRATIVE: CASE EVENT DATE: 20140523
